FAERS Safety Report 23897902 (Version 1)
Quarter: 2024Q2

REPORT INFORMATION
  Report Type: Spontaneous
  Country: US (occurrence: US)
  Receive Date: 20240524
  Receipt Date: 20240524
  Transmission Date: 20240715
  Serious: Yes (Hospitalization, Other)
  Sender: FDA-Public Use
  Company Number: US-ELI_LILLY_AND_COMPANY-US202405007822

PATIENT
  Age: 65 Year
  Sex: Female

DRUGS (6)
  1. SELPERCATINIB [Suspect]
     Active Substance: SELPERCATINIB
     Indication: Non-small cell lung cancer
     Dosage: 160 MG, UNKNOWN
     Route: 065
  2. SELPERCATINIB [Suspect]
     Active Substance: SELPERCATINIB
     Indication: Thyroid cancer
     Dosage: 80 MG, UNKNOWN
     Route: 065
  3. SELPERCATINIB [Suspect]
     Active Substance: SELPERCATINIB
     Indication: Thymic carcinoma
  4. PRALSETINIB [Concomitant]
     Active Substance: PRALSETINIB
     Indication: Non-small cell lung cancer
     Dosage: 100 MG, UNKNOWN
     Route: 065
  5. PRALSETINIB [Concomitant]
     Active Substance: PRALSETINIB
     Indication: Thyroid cancer
     Dosage: 200 MG, UNKNOWN
     Route: 065
  6. PRALSETINIB [Concomitant]
     Active Substance: PRALSETINIB
     Indication: Thymic carcinoma
     Dosage: 400 MG, UNKNOWN
     Route: 065

REACTIONS (6)
  - Haemoptysis [Unknown]
  - Petechiae [Unknown]
  - Glioblastoma [Unknown]
  - Thrombocytopenia [Unknown]
  - Hypertension [Unknown]
  - Hypertransaminasaemia [Unknown]
